FAERS Safety Report 24832594 (Version 1)
Quarter: 2025Q1

REPORT INFORMATION
  Report Type: Spontaneous
  Country: US (occurrence: US)
  Receive Date: 20250110
  Receipt Date: 20250110
  Transmission Date: 20250408
  Serious: Yes (Hospitalization, Other)
  Sender: SAMSUNG BIOEPIS
  Company Number: US-SAMSUNG BIOEPIS-SB-2025-00226

PATIENT
  Age: 46 Year
  Sex: Female

DRUGS (2)
  1. INFLIXIMAB [Suspect]
     Active Substance: INFLIXIMAB
     Indication: Crohn^s disease
  2. METHYLPREDNISOLONE [Suspect]
     Active Substance: METHYLPREDNISOLONE
     Indication: Crohn^s disease
     Route: 042

REACTIONS (8)
  - Pulmonary embolism [Unknown]
  - Septic shock [Unknown]
  - Pneumonia aspiration [Unknown]
  - Ischaemic enteritis [Unknown]
  - Mesenteric artery thrombosis [Unknown]
  - Crohn^s disease [Unknown]
  - Intestinal anastomosis complication [Unknown]
  - Drug ineffective [Unknown]
